FAERS Safety Report 5027093-5 (Version None)
Quarter: 2006Q2

REPORT INFORMATION
  Report Type: 
  Country: None (occurrence: None)
  Receive Date: 20060609
  Receipt Date: 20060525
  Transmission Date: 20061013
  Serious: Yes (Hospitalization)
  Sender: FDA-Public Use
  Company Number: SPVI-2006-00009

PATIENT
  Age: 16 Year
  Sex: Female

DRUGS (1)
  1. ADDERALL 15 [Suspect]
     Dosage: 20 MG, ONE DOSE

REACTIONS (4)
  - BLOOD PRESSURE INCREASED [None]
  - INTENTIONAL DRUG MISUSE [None]
  - TACHYCARDIA [None]
  - TETANY [None]
